FAERS Safety Report 5475718-2 (Version None)
Quarter: 2007Q4

REPORT INFORMATION
  Report Type: 
  Country: None (occurrence: None)
  Receive Date: 20071001
  Receipt Date: 20071001
  Transmission Date: 20080405
  Serious: Yes (Death)
  Sender: FDA-Public Use
  Company Number: None

PATIENT
  Age: 27 Year
  Sex: Female
  Weight: 55 kg

DRUGS (2)
  1. TOPAMAX [Suspect]
     Dosage: 25MG TWICE DAILY
     Dates: start: 20070804, end: 20070906
  2. TOPAMAX [Suspect]
     Dosage: 50 MG ONCE DAILY
     Dates: start: 20070907, end: 20070914

REACTIONS (6)
  - COMPLETED SUICIDE [None]
  - CRYING [None]
  - DECREASED ACTIVITY [None]
  - FEELING ABNORMAL [None]
  - PSYCHIATRIC SYMPTOM [None]
  - SOMNOLENCE [None]
